FAERS Safety Report 11175075 (Version 1)
Quarter: 2015Q2

REPORT INFORMATION
  Report Type: Spontaneous
  Country: IT (occurrence: IT)
  Receive Date: 20150609
  Receipt Date: 20150609
  Transmission Date: 20150821
  Serious: Yes (Other)
  Sender: FDA-Public Use
  Company Number: IT-WATSON-2015-11831

PATIENT
  Age: 70 Year
  Sex: Male

DRUGS (5)
  1. DECADRON [Concomitant]
     Active Substance: DEXAMETHASONE
     Indication: PREMEDICATION
     Dosage: UNK
     Route: 042
     Dates: start: 20150521, end: 20150521
  2. PANTORC [Concomitant]
     Active Substance: PANTOPRAZOLE SODIUM
     Indication: PREMEDICATION
     Dosage: 40 MG, UNKNOWN
     Route: 042
     Dates: start: 20150521, end: 20150521
  3. CARBOPLATIN. [Suspect]
     Active Substance: CARBOPLATIN
     Indication: LUNG NEOPLASM MALIGNANT
     Dosage: 250 MG UED, UNKNOWN
     Route: 042
     Dates: start: 20150521, end: 20150521
  4. ONDANSETRONE HIKMA [Concomitant]
     Active Substance: ONDANSETRON
     Indication: PREMEDICATION
     Dosage: 8 MG, UNKNOWN
     Route: 042
     Dates: start: 20150521, end: 20150521
  5. TRIMETON [Concomitant]
     Active Substance: CHLORPHENIRAMINE MALEATE
     Indication: PREMEDICATION
     Dosage: UNK
     Route: 042
     Dates: start: 20150521, end: 20150521

REACTIONS (2)
  - Dyspnoea [Recovered/Resolved]
  - Rash [Recovered/Resolved]

NARRATIVE: CASE EVENT DATE: 20150521
